FAERS Safety Report 24061251 (Version 2)
Quarter: 2024Q3

REPORT INFORMATION
  Report Type: Spontaneous
  Country: US (occurrence: US)
  Receive Date: 20240708
  Receipt Date: 20240806
  Transmission Date: 20241017
  Serious: No
  Sender: BRISTOL MYERS SQUIBB
  Company Number: US-BRISTOL-MYERS SQUIBB COMPANY-2024-108017

PATIENT
  Age: 80 Year
  Sex: Male
  Weight: 94.8 kg

DRUGS (1)
  1. REVLIMID [Suspect]
     Active Substance: LENALIDOMIDE
     Indication: Monoclonal gammopathy
     Route: 048
     Dates: start: 20240501

REACTIONS (5)
  - Brain fog [Recovering/Resolving]
  - Apathy [Recovering/Resolving]
  - Somnolence [Recovering/Resolving]
  - Off label use [Recovering/Resolving]
  - Gout [Not Recovered/Not Resolved]
